FAERS Safety Report 6523586-X (Version None)
Quarter: 2009Q4

REPORT INFORMATION
  Report Type: 
  Country: None (occurrence: None)
  Receive Date: 20091231
  Receipt Date: 20091222
  Transmission Date: 20100525
  Serious: Yes (Other)
  Sender: FDA-Public Use
  Company Number: PHHY2009JP30817

PATIENT
  Age: 74 Year
  Sex: Female

DRUGS (3)
  1. TEGRETOL [Suspect]
     Dosage: 200 MG DAILY
     Route: 048
     Dates: start: 20090721
  2. TEGRETOL [Suspect]
     Dosage: 400 MG DAILY
     Route: 048
     Dates: start: 20090722
  3. TEGRETOL [Suspect]
     Dosage: 200 MG DAILY
     Route: 048
     Dates: start: 20090723, end: 20090723

REACTIONS (7)
  - COMMUNICATION DISORDER [None]
  - DISORIENTATION [None]
  - DRUG LEVEL INCREASED [None]
  - DRUG TOXICITY [None]
  - FALL [None]
  - MEMORY IMPAIRMENT [None]
  - RESTLESSNESS [None]
